FAERS Safety Report 19619919 (Version 1)
Quarter: 2021Q3

REPORT INFORMATION
  Report Type: Report from Study
  Country: None (occurrence: RO)
  Receive Date: 20210727
  Receipt Date: 20210727
  Transmission Date: 20211014
  Serious: Yes (Hospitalization)
  Sender: FDA-Public Use
  Company Number: RO-ABBVIE-21K-135-4005643-00

PATIENT
  Age: 70 Year
  Sex: Male

DRUGS (1)
  1. HUMIRA [Suspect]
     Active Substance: ADALIMUMAB
     Indication: PSORIASIS
     Route: 058
     Dates: start: 20180809

REACTIONS (3)
  - Abdominal injury [Recovered/Resolved]
  - Fall [Unknown]
  - Abdominal wall cyst [Recovered/Resolved]

NARRATIVE: CASE EVENT DATE: 2020
